FAERS Safety Report 4262576-7 (Version None)
Quarter: 2004Q1

REPORT INFORMATION
  Report Type: 
  Country: None (occurrence: None)
  Receive Date: 20040102
  Receipt Date: 20031201
  Transmission Date: 20041129
  Serious: Yes (Disabling)
  Sender: FDA-Public Use
  Company Number: WAES 0312USA00191

PATIENT
  Age: 78 Year
  Sex: Male
  Weight: 79 kg

DRUGS (3)
  1. ASPIRIN [Concomitant]
  2. PROSCAR [Suspect]
     Indication: BENIGN PROSTATIC HYPERPLASIA
     Route: 048
     Dates: start: 20020101, end: 20031204
  3. FLOMAX [Concomitant]
     Indication: BENIGN PROSTATIC HYPERPLASIA
     Route: 048
     Dates: start: 20020101, end: 20020101

REACTIONS (6)
  - BACK PAIN [None]
  - FEELING ABNORMAL [None]
  - MUSCLE ATROPHY [None]
  - MUSCLE CRAMP [None]
  - MUSCULOSKELETAL PAIN [None]
  - OSTEOPOROSIS [None]
